FAERS Safety Report 19260689 (Version 1)
Quarter: 2021Q2

REPORT INFORMATION
  Report Type: Spontaneous
  Country: US (occurrence: US)
  Receive Date: 20210514
  Receipt Date: 20210514
  Transmission Date: 20210717
  Serious: Yes (Life-Threatening, Hospitalization, Other)
  Sender: FDA-Public Use
  Company Number: US-BAXTER-2021BAX010291

PATIENT
  Age: 69 Year
  Sex: Male

DRUGS (20)
  1. VANCOMYCIN [Suspect]
     Active Substance: VANCOMYCIN
     Dosage: DOSE INCREASED
     Route: 048
  2. METHYLCELLULOSE [Concomitant]
     Active Substance: METHYLCELLULOSES
     Dosage: 2 G IN 240 ML OF WATER UP TO 3 TIMES DAILY
     Route: 065
  3. PROBIOTIC [Concomitant]
     Active Substance: PROBIOTICS NOS
     Indication: PROBIOTIC THERAPY
     Dosage: 25 BILLION ACTIVE CULTURES PER 97 MG
     Route: 048
  4. VANCOMYCIN [Suspect]
     Active Substance: VANCOMYCIN
     Indication: CLOSTRIDIUM DIFFICILE COLITIS
     Route: 048
  5. VANCOMYCIN [Suspect]
     Active Substance: VANCOMYCIN
     Dosage: 250 MG TO 500 MG 4 TIMES DAILY
     Route: 048
  6. DICYCLOMINE [Concomitant]
     Active Substance: DICYCLOMINE HYDROCHLORIDE
     Indication: ABDOMINAL PAIN
     Route: 048
  7. METRONIDAZOLE INJECTION, USP [Suspect]
     Active Substance: METRONIDAZOLE
     Route: 042
  8. DICYCLOMINE [Concomitant]
     Active Substance: DICYCLOMINE HYDROCHLORIDE
     Dosage: BEFORE MEALS AS NEEDED
     Route: 048
  9. SODIUM CHLORIDE 0.9% [Concomitant]
     Active Substance: SODIUM CHLORIDE
     Indication: PRODUCT USED FOR UNKNOWN INDICATION
     Route: 040
  10. SODIUM CHLORIDE 0.9% [Concomitant]
     Active Substance: SODIUM CHLORIDE
     Dosage: 0.9% NACL 100 ML SOLUTION RECTAL ENEMA Q 6 H (RETAINED ~20 MIN)
     Route: 054
  11. DIPHENOXYLATE/ATROPINE [Concomitant]
     Active Substance: ATROPINE\DIPHENOXYLATE
     Indication: PRODUCT USED FOR UNKNOWN INDICATION
     Dosage: (0.025 MG/2.5 MG) ORALLY 2.5 HOURS BEFORE AND 1 TABLET 1.5 HOURS AFTER FMT
     Route: 048
  12. VANCOMYCIN [Suspect]
     Active Substance: VANCOMYCIN
     Dosage: 500 MG IN 0.9% NACL 100 ML SOLUTION RECTAL ENEMA Q 6 H (RETAINED ~20 MIN)
     Route: 054
  13. VANCOMYCIN [Concomitant]
     Active Substance: VANCOMYCIN
     Indication: EVIDENCE BASED TREATMENT
     Dosage: ONCE
     Route: 042
  14. CALCIUM POLYCARBOPHIL. [Concomitant]
     Active Substance: CALCIUM POLYCARBOPHIL
     Indication: PRODUCT USED FOR UNKNOWN INDICATION
     Route: 048
  15. DIPHENOXYLATE/ATROPINE [Concomitant]
     Active Substance: ATROPINE\DIPHENOXYLATE
     Dosage: (0.025 MG/2.5 MG) ORALLY 2.5 HOURS BEFORE AND 1 TABLET 1.5 HOURS AFTER FMT
     Route: 048
  16. METHYLCELLULOSE [Concomitant]
     Active Substance: METHYLCELLULOSES
     Indication: NUTRITIONAL SUPPLEMENTATION
     Dosage: 2 G IN 240 ML OF WATER
     Route: 048
  17. METRONIDAZOLE INJECTION, USP [Suspect]
     Active Substance: METRONIDAZOLE
     Indication: CLOSTRIDIUM DIFFICILE COLITIS
     Dosage: ONCE
     Route: 042
  18. VANCOMYCIN [Suspect]
     Active Substance: VANCOMYCIN
     Dosage: DOSE DECREASED, ONE DOSE
     Route: 048
  19. METHYLCELLULOSE [Concomitant]
     Active Substance: METHYLCELLULOSES
     Dosage: 2 G IN 240 ML OF WATER UP TO 3 TIMES DAILY FOR FIBER SUPPLEMENTATION
  20. CIPROFLOXACIN. [Concomitant]
     Active Substance: CIPROFLOXACIN
     Indication: EVIDENCE BASED TREATMENT
     Dosage: ONCE
     Route: 042

REACTIONS (1)
  - Treatment failure [Recovered/Resolved]
